FAERS Safety Report 10614306 (Version 1)
Quarter: 2014Q4

REPORT INFORMATION
  Report Type: Spontaneous
  Country: PL (occurrence: PL)
  Receive Date: 20141128
  Receipt Date: 20141128
  Transmission Date: 20150529
  Serious: Yes (Other)
  Sender: FDA-Public Use
  Company Number: PHHY2014PL150322

PATIENT
  Age: 57 Year
  Sex: Female

DRUGS (2)
  1. TASIGNA [Suspect]
     Active Substance: NILOTINIB
     Indication: CHRONIC MYELOID LEUKAEMIA
     Dosage: 800 MG, QD
     Route: 065
     Dates: start: 201008
  2. TASIGNA [Suspect]
     Active Substance: NILOTINIB
     Dosage: 400 MG, QD
     Route: 065
     Dates: start: 201103

REACTIONS (15)
  - Pericardial effusion [Unknown]
  - Hypokalaemia [Unknown]
  - Myocardial infarction [Unknown]
  - Skin lesion [Unknown]
  - Pancreatitis [Unknown]
  - Diabetes mellitus [Unknown]
  - Lipase increased [Unknown]
  - Dry skin [Unknown]
  - Skin ulcer [Unknown]
  - Carotid artery stenosis [Unknown]
  - Arterial disorder [Unknown]
  - Arteriosclerosis [Unknown]
  - Weight decreased [Unknown]
  - Peripheral ischaemia [Unknown]
  - Erythema [Recovered/Resolved]

NARRATIVE: CASE EVENT DATE: 201105
